FAERS Safety Report 7625261-7 (Version None)
Quarter: 2011Q3

REPORT INFORMATION
  Report Type: 
  Country: None (occurrence: None)
  Receive Date: 20110713
  Receipt Date: 20110628
  Transmission Date: 20111222
  Serious: Yes (Hospitalization)
  Sender: FDA-Public Use
  Company Number: 2011MA008151

PATIENT
  Age: 3 Year
  Sex: Male

DRUGS (3)
  1. SULFATRIM PEDIATRIC [Suspect]
     Indication: INFECTION PROPHYLAXIS
     Dosage: ; TIW;
  2. PENICILLIN V [Concomitant]
  3. GANCICLOVIR [Suspect]
     Indication: CYTOMEGALOVIRUS INFECTION

REACTIONS (2)
  - LINEAR IGA DISEASE [None]
  - CYTOMEGALOVIRUS INFECTION [None]
